FAERS Safety Report 8923913 (Version 1)
Quarter: 2012Q4

REPORT INFORMATION
  Report Type: 
  Country: KR (occurrence: KR)
  Receive Date: 20121126
  Receipt Date: 20121126
  Transmission Date: 20130627
  Serious: Yes (Hospitalization, Other)
  Sender: FDA-Public Use
  Company Number: KR-ELI_LILLY_AND_COMPANY-KR201211004516

PATIENT
  Age: 77 Year
  Sex: Female

DRUGS (1)
  1. FORSTEO [Suspect]
     Indication: OSTEOPOROSIS
     Dosage: 20 ug, qd
     Route: 058
     Dates: start: 20121002

REACTIONS (4)
  - Cardiovascular disorder [Recovered/Resolved]
  - Upper limb fracture [Recovered/Resolved]
  - Joint dislocation [Recovered/Resolved]
  - Fall [Recovered/Resolved]
